FAERS Safety Report 25890039 (Version 1)
Quarter: 2025Q4

REPORT INFORMATION
  Report Type: Spontaneous
  Country: US (occurrence: None)
  Receive Date: 20251007
  Receipt Date: 20251007
  Transmission Date: 20260118
  Serious: Yes (Hospitalization)
  Sender: FDA-CTU
  Company Number: None

PATIENT
  Age: 41 Year
  Sex: Male
  Weight: 70.5 kg

DRUGS (3)
  1. CISPLATIN [Suspect]
     Active Substance: CISPLATIN
     Dates: end: 20250910
  2. GEMCITABINE HYDROCHLORIDE [Suspect]
     Active Substance: GEMCITABINE HYDROCHLORIDE
     Dates: end: 20250910
  3. NEULASTA [Suspect]
     Active Substance: PEGFILGRASTIM
     Dates: end: 20250910

REACTIONS (9)
  - Pyrexia [None]
  - Flank pain [None]
  - Pain [None]
  - Leukocytosis [None]
  - Hypotension [None]
  - Blood culture positive [None]
  - Weight decreased [None]
  - Therapy interrupted [None]
  - Device malfunction [None]

NARRATIVE: CASE EVENT DATE: 20250926
